FAERS Safety Report 19473619 (Version 1)
Quarter: 2021Q2

REPORT INFORMATION
  Report Type: Report from Study
  Country: US (occurrence: US)
  Receive Date: 20210629
  Receipt Date: 20210629
  Transmission Date: 20210717
  Serious: Yes (Other)
  Sender: FDA-Public Use
  Company Number: US-TAKEDA-US201933841

PATIENT
  Age: 7 Year
  Sex: Female

DRUGS (1)
  1. HUMAN NORMAL IMMUNOGLOBULIN; LIQUID [Suspect]
     Active Substance: HUMAN IMMUNOGLOBULIN G
     Indication: PRIMARY IMMUNODEFICIENCY SYNDROME
     Dosage: 32 GRAM
     Route: 042

REACTIONS (5)
  - Lung disorder [Unknown]
  - Brain operation [Unknown]
  - Diaphragmatic hernia [Unknown]
  - Malaise [Unknown]
  - Multimorbidity [Unknown]

NARRATIVE: CASE EVENT DATE: 20191008
